FAERS Safety Report 6390791-5 (Version None)
Quarter: 2009Q4

REPORT INFORMATION
  Report Type: 
  Country: None (occurrence: None)
  Receive Date: 20091001
  Receipt Date: 20090810
  Transmission Date: 20100525
  Serious: No
  Sender: FDA-Public Use
  Company Number: 1000008124

PATIENT
  Age: 60 Year
  Sex: Male

DRUGS (1)
  1. BYSTOLIC [Suspect]
     Dosage: 5 MG (5 MG,1 IN 1 D) ,ORAL
     Route: 048

REACTIONS (1)
  - RASH [None]
